FAERS Safety Report 6068951-2 (Version None)
Quarter: 2009Q1

REPORT INFORMATION
  Report Type: 
  Country: None (occurrence: None)
  Receive Date: 20090206
  Receipt Date: 20090128
  Transmission Date: 20090719
  Serious: Yes (Other)
  Sender: FDA-Public Use
  Company Number: PHHO2008CA14196

PATIENT
  Sex: Female
  Weight: 73 kg

DRUGS (1)
  1. STI571/CGP57148B T35717+TAB [Suspect]
     Dosage: FOETAL DRUG EXPOSURE VIA FATHER

REACTIONS (4)
  - ABORTION SPONTANEOUS [None]
  - DRUG EXPOSURE DURING PREGNANCY [None]
  - PATERNAL DRUGS AFFECTING FOETUS [None]
  - PREGNANCY WITH CONTRACEPTIVE DEVICE [None]
